FAERS Safety Report 8798729 (Version 2)
Quarter: 2013Q1

REPORT INFORMATION
  Report Type: Report from Study
  Country: CA (occurrence: CA)
  Receive Date: 20120920
  Receipt Date: 20130104
  Transmission Date: 20140127
  Serious: Yes (Other)
  Sender: FDA-Public Use
  Company Number: CA-ROCHE-1130400

PATIENT
  Age: 32 None
  Sex: Female
  Weight: 50 kg

DRUGS (6)
  1. TOCILIZUMAB [Suspect]
     Indication: RHEUMATOID ARTHRITIS
     Route: 042
     Dates: start: 20120608
  2. PREDFOAM [Concomitant]
  3. BETAGAN [Concomitant]
  4. MULTIVITAMIN [Concomitant]
  5. FOLIC ACID [Concomitant]
  6. METHOTREXATE [Concomitant]
     Indication: RHEUMATOID ARTHRITIS

REACTIONS (2)
  - Pericardial effusion [Not Recovered/Not Resolved]
  - Pharyngitis [Not Recovered/Not Resolved]
